FAERS Safety Report 21603684 (Version 1)
Quarter: 2022Q4

REPORT INFORMATION
  Report Type: Spontaneous
  Country: CA (occurrence: CA)
  Receive Date: 20221116
  Receipt Date: 20221116
  Transmission Date: 20230112
  Serious: Yes (Hospitalization)
  Sender: FDA-Public Use
  Company Number: CA-PFIZER INC-202201303430

PATIENT
  Age: 85 Year
  Sex: Female

DRUGS (4)
  1. ATIVAN [Suspect]
     Active Substance: LORAZEPAM
     Indication: Nervousness
     Dosage: 0.5 MG, 2X/DAY
     Route: 048
  2. ATIVAN [Suspect]
     Active Substance: LORAZEPAM
     Indication: Anxiety
  3. ATIVAN [Suspect]
     Active Substance: LORAZEPAM
     Indication: Agitation
  4. RISPERIDONE [Suspect]
     Active Substance: RISPERIDONE
     Indication: Agitation
     Dosage: 0.5 MG, 1X/DAY
     Route: 048

REACTIONS (2)
  - Fall [Recovering/Resolving]
  - Parkinsonism [Recovering/Resolving]
